FAERS Safety Report 13118458 (Version 2)
Quarter: 2017Q1

REPORT INFORMATION
  Report Type: Report from Study
  Country: CA (occurrence: CA)
  Receive Date: 20170116
  Receipt Date: 20170203
  Transmission Date: 20170428
  Serious: Yes (Other)
  Sender: FDA-Public Use
  Company Number: CA-JNJFOC-20170110687

PATIENT
  Age: 71 Year
  Sex: Male

DRUGS (1)
  1. IMBRUVICA [Suspect]
     Active Substance: IBRUTINIB
     Indication: MANTLE CELL LYMPHOMA
     Route: 048
     Dates: start: 20161223

REACTIONS (4)
  - Diarrhoea [Recovered/Resolved]
  - Haemoptysis [Recovered/Resolved]
  - Fatigue [Unknown]
  - Blood blister [Recovered/Resolved]

NARRATIVE: CASE EVENT DATE: 20161225
